FAERS Safety Report 16181538 (Version 1)
Quarter: 2019Q2

REPORT INFORMATION
  Report Type: Report from Study
  Country: ES (occurrence: ES)
  Receive Date: 20190410
  Receipt Date: 20190410
  Transmission Date: 20190711
  Serious: Yes (Life-Threatening, Hospitalization)
  Sender: FDA-Public Use
  Company Number: ES-PFIZER INC-2019148383

PATIENT
  Age: 74 Year
  Sex: Male

DRUGS (6)
  1. ALPRAZOLAM. [Interacting]
     Active Substance: ALPRAZOLAM
     Dosage: 80 MG, SINGLE
     Route: 048
     Dates: start: 20181010, end: 20181010
  2. LORAZEPAM. [Interacting]
     Active Substance: LORAZEPAM
     Indication: DEPRESSION
     Dosage: 1.5 MG, 1X/DAY
     Dates: start: 20060619, end: 20181010
  3. ALPRAZOLAM. [Suspect]
     Active Substance: ALPRAZOLAM
     Indication: DEPRESSION
     Dosage: 1.5 MG, 1X/DAY
     Dates: start: 20091002, end: 20181010
  4. LORAZEPAM. [Interacting]
     Active Substance: LORAZEPAM
     Dosage: 1000 MG, SINGLE
     Route: 048
     Dates: start: 20181010, end: 20181010
  5. PREGABALIN. [Interacting]
     Active Substance: PREGABALIN
     Dosage: 8.4 G, SINGLE
     Route: 048
     Dates: start: 20181010, end: 20181010
  6. CARBONATO CALCICO / COLECALCIFEROL CINFA [Interacting]
     Active Substance: CALCIUM CARBONATE\CHOLECALCIFEROL
     Dosage: UNK
     Route: 048
     Dates: start: 20181010, end: 20181010

REACTIONS (3)
  - Intentional overdose [Recovered/Resolved]
  - Depressed level of consciousness [Recovered/Resolved]
  - Drug interaction [Recovered/Resolved]

NARRATIVE: CASE EVENT DATE: 20181010
